FAERS Safety Report 25952511 (Version 1)
Quarter: 2025Q4

REPORT INFORMATION
  Report Type: Spontaneous
  Country: EU (occurrence: EU)
  Receive Date: 20251023
  Receipt Date: 20251023
  Transmission Date: 20260117
  Serious: Yes (Other)
  Sender: PFIZER
  Company Number: EU-ROCHE-10000406804

PATIENT
  Age: 71 Year
  Sex: Female

DRUGS (3)
  1. TRASTUZUMAB [Suspect]
     Active Substance: TRASTUZUMAB
     Dosage: UNK
  2. PERTUZUMAB [Suspect]
     Active Substance: PERTUZUMAB
     Dosage: UNK
  3. KADCYLA [Suspect]
     Active Substance: ADO-TRASTUZUMAB EMTANSINE
     Dosage: 3.6 MG/KG, EVERY 2 WEEKS

REACTIONS (2)
  - Thrombocytopenia [Unknown]
  - Hepatotoxicity [Unknown]
